FAERS Safety Report 18081585 (Version 1)
Quarter: 2020Q3

REPORT INFORMATION
  Report Type: Spontaneous
  Country: US (occurrence: US)
  Receive Date: 20200728
  Receipt Date: 20200728
  Transmission Date: 20201103
  Serious: Yes (Hospitalization, Disabling, Other)
  Sender: FDA-Public Use
  Company Number: US-PURDUE-USA-2020-0159552

PATIENT
  Age: 54 Year
  Sex: Male

DRUGS (8)
  1. HYDROCODONE BITARTRATE (SIMILAR TO NDA 206627) [Suspect]
     Active Substance: HYDROCODONE BITARTRATE
     Indication: PRODUCT USED FOR UNKNOWN INDICATION
     Route: 048
  2. IBUPROFEN. [Concomitant]
     Active Substance: IBUPROFEN
     Indication: DERMATITIS
     Dosage: UNK
     Route: 065
     Dates: start: 20070224
  3. OXYCONTIN [Suspect]
     Active Substance: OXYCODONE HYDROCHLORIDE
     Indication: PRODUCT USED FOR UNKNOWN INDICATION
     Route: 048
  4. CLEOCIN [Concomitant]
     Active Substance: CLINDAMYCIN PHOSPHATE
     Indication: PRODUCT USED FOR UNKNOWN INDICATION
     Dosage: 150 MG, QID
     Route: 065
  5. OXYCODONE/ ACETAMINOPHEN TABLETS [Suspect]
     Active Substance: ACETAMINOPHEN\OXYCODONE HYDROCHLORIDE
     Indication: PRODUCT USED FOR UNKNOWN INDICATION
     Route: 048
  6. VICODIN [Suspect]
     Active Substance: ACETAMINOPHEN\HYDROCODONE BITARTRATE
     Indication: DERMATITIS
     Dosage: UNK
     Route: 065
     Dates: start: 20070224
  7. HYDROCODONE BITARTRATE AND ACETAMINOPHEN [Suspect]
     Active Substance: ACETAMINOPHEN\HYDROCODONE BITARTRATE
     Indication: PRODUCT USED FOR UNKNOWN INDICATION
     Route: 048
  8. MOTRIN [Concomitant]
     Active Substance: IBUPROFEN
     Indication: APICECTOMY
     Dosage: 800 MG, Q6H PRN
     Route: 065
     Dates: start: 20070315

REACTIONS (29)
  - Drug dependence [Unknown]
  - Localised oedema [Unknown]
  - Spinal fracture [Unknown]
  - Pulmonary fibrosis [Unknown]
  - Post-traumatic stress disorder [Unknown]
  - Hypertension [Unknown]
  - Haemorrhoids [Unknown]
  - Drug abuse [Unknown]
  - Orthognathic surgery [Unknown]
  - Hypoaesthesia [Unknown]
  - Rectal haemorrhage [Unknown]
  - Back injury [Unknown]
  - Joint injury [Unknown]
  - Apicectomy [Unknown]
  - Pain [Unknown]
  - Anal fissure [Unknown]
  - Fall [Unknown]
  - Imprisonment [Unknown]
  - Head injury [Unknown]
  - Homicide [Unknown]
  - Chronic respiratory disease [Unknown]
  - Asthenia [Unknown]
  - Cough [Unknown]
  - Dermatitis [Unknown]
  - Stab wound [Unknown]
  - Blindness unilateral [Unknown]
  - Tetanus [Unknown]
  - Medication error [Unknown]
  - Illness [Unknown]

NARRATIVE: CASE EVENT DATE: 20070316
